FAERS Safety Report 25708724 (Version 2)
Quarter: 2025Q3

REPORT INFORMATION
  Report Type: Spontaneous
  Country: US (occurrence: US)
  Receive Date: 20250821
  Receipt Date: 20250828
  Transmission Date: 20251020
  Serious: No
  Sender: ABBVIE
  Company Number: US-ABBVIE-6424225

PATIENT
  Sex: Male

DRUGS (2)
  1. REFRESH RELIEVA PF XTRA [Suspect]
     Active Substance: CARBOXYMETHYLCELLULOSE SODIUM\GLYCERIN
     Indication: Dry eye
     Route: 047
  2. REFRESH RELIEVA PF XTRA [Suspect]
     Active Substance: CARBOXYMETHYLCELLULOSE SODIUM\GLYCERIN
     Indication: Age-related macular degeneration

REACTIONS (1)
  - Off label use [Unknown]
